FAERS Safety Report 25761544 (Version 1)
Quarter: 2025Q3

REPORT INFORMATION
  Report Type: Spontaneous
  Country: US (occurrence: None)
  Receive Date: 20250903
  Receipt Date: 20250903
  Transmission Date: 20251021
  Serious: Yes (Disabling, Other)
  Sender: FDA-CTU
  Company Number: None

PATIENT
  Age: 46 Year
  Sex: Female
  Weight: 92.25 kg

DRUGS (3)
  1. EBGLYSS [Suspect]
     Active Substance: LEBRIKIZUMAB-LBKZ
     Indication: Eczema
     Dates: start: 20250506, end: 20250506
  2. DEVICE [Concomitant]
     Active Substance: DEVICE
  3. PAROXETINE [Concomitant]
     Active Substance: PAROXETINE

REACTIONS (8)
  - Eye swelling [None]
  - Rash [None]
  - Rash [None]
  - Ear discomfort [None]
  - Erythema [None]
  - Lymphadenopathy [None]
  - Pruritus [None]
  - Pruritus [None]

NARRATIVE: CASE EVENT DATE: 20250508
